FAERS Safety Report 21347003 (Version 1)
Quarter: 2022Q3

REPORT INFORMATION
  Report Type: Spontaneous
  Country: RO (occurrence: RO)
  Receive Date: 20220918
  Receipt Date: 20220918
  Transmission Date: 20221027
  Serious: Yes (Death, Other)
  Sender: FDA-Public Use
  Company Number: RO-PFIZER INC-202201157379

PATIENT

DRUGS (1)
  1. ENBREL [Suspect]
     Active Substance: ETANERCEPT
     Indication: Rheumatic disorder
     Dosage: UNK
     Route: 065

REACTIONS (1)
  - COVID-19 [Fatal]
